FAERS Safety Report 6711654-9 (Version None)
Quarter: 2010Q2

REPORT INFORMATION
  Report Type: 
  Country: None (occurrence: None)
  Receive Date: 20100505
  Receipt Date: 20100423
  Transmission Date: 20101027
  Serious: Yes (Other)
  Sender: FDA-Public Use
  Company Number: US-JNJFOC-20100407491

PATIENT
  Sex: Female
  Weight: 67.13 kg

DRUGS (4)
  1. EXTRA STRENGTH TYLENOL [Suspect]
     Route: 048
  2. EXTRA STRENGTH TYLENOL [Suspect]
     Indication: GASTROENTERITIS VIRAL
     Route: 048
  3. ZOFRAN [Concomitant]
     Indication: NAUSEA
  4. PRENATAL VITAMINS [Concomitant]

REACTIONS (5)
  - COMPLICATION OF PREGNANCY [None]
  - DRUG EXPOSURE DURING PREGNANCY [None]
  - NASOPHARYNGITIS [None]
  - OROPHARYNGEAL PAIN [None]
  - UTERINE SPASM [None]
